FAERS Safety Report 9538000 (Version 1)
Quarter: 2013Q3

REPORT INFORMATION
  Report Type: Report from Study
  Country: US (occurrence: US)
  Receive Date: 20130919
  Receipt Date: 20130919
  Transmission Date: 20140515
  Serious: Yes (Hospitalization, Other)
  Sender: FDA-Public Use
  Company Number: US-ABBVIE-13P-163-1145653-00

PATIENT
  Age: 82 Year
  Sex: Female
  Weight: 65.83 kg

DRUGS (6)
  1. HUMIRA [Suspect]
     Indication: RHEUMATOID ARTHRITIS
     Route: 058
     Dates: start: 200505
  2. ULORIC [Concomitant]
     Indication: GOUT
  3. LEVOXYL [Concomitant]
     Indication: THYROID DISORDER
  4. OMEPRAZOLE [Concomitant]
     Indication: PROPHYLAXIS AGAINST GASTROINTESTINAL ULCER
  5. DIOVAN [Concomitant]
     Indication: HYPERTENSION
  6. METOPROLOL [Concomitant]
     Indication: BLOOD PRESSURE

REACTIONS (4)
  - Renal failure [Recovered/Resolved]
  - Cardiac failure congestive [Not Recovered/Not Resolved]
  - Asthenia [Not Recovered/Not Resolved]
  - Dementia [Not Recovered/Not Resolved]
